FAERS Safety Report 7588622-0 (Version None)
Quarter: 2011Q3

REPORT INFORMATION
  Report Type: 
  Country: None (occurrence: None)
  Receive Date: 20110705
  Receipt Date: 20110630
  Transmission Date: 20111222
  Serious: Yes (Other)
  Sender: FDA-Public Use
  Company Number: IT-BRISTOL-MYERS SQUIBB COMPANY-15771959

PATIENT
  Age: 43 Year
  Sex: Male
  Weight: 140 kg

DRUGS (2)
  1. METFORMIN HCL [Suspect]
     Route: 048
     Dates: start: 20060101, end: 20110629
  2. ONGLYZA [Suspect]
     Indication: TYPE 2 DIABETES MELLITUS
     Dosage: 1 UNIT
     Route: 048
     Dates: start: 20110118, end: 20110524

REACTIONS (1)
  - PANCREATITIS [None]
